FAERS Safety Report 24759064 (Version 1)
Quarter: 2024Q4

REPORT INFORMATION
  Report Type: Spontaneous
  Country: CH (occurrence: CH)
  Receive Date: 20241220
  Receipt Date: 20241220
  Transmission Date: 20250115
  Serious: Yes (Death, Hospitalization, Other)
  Sender: TEVA
  Company Number: None

PATIENT
  Age: 79 Year
  Sex: Male

DRUGS (11)
  1. AMOXICILLIN\CLAVULANIC ACID [Suspect]
     Active Substance: AMOXICILLIN\CLAVULANIC ACID
     Indication: Erysipelas
     Dosage: CO AMOXICILLIN
     Route: 048
     Dates: start: 20240722
  2. AMOXICILLIN\CLAVULANIC ACID [Suspect]
     Active Substance: AMOXICILLIN\CLAVULANIC ACID
     Indication: Erysipelas
     Dosage: TIME INTERVAL: TOTAL
     Route: 040
     Dates: start: 20240725
  3. PREGABALIN [Concomitant]
     Active Substance: PREGABALIN
     Indication: Product used for unknown indication
     Dosage: 75 MG 1-0-1-0, STOPPED DURING THE COURSE
     Route: 048
  4. NEBIVOLOL STREULI [Concomitant]
     Indication: Atrial fibrillation
     Dosage: 2. 5 MG 1X DAILY, INDICATION: TACHYCARDIC ATRIAL FIBRILLATION,
     Route: 048
  5. AMLODIPINE BESYLATE\VALSARTAN [Concomitant]
     Active Substance: AMLODIPINE BESYLATE\VALSARTAN
     Indication: Hypertension
     Dosage: AMLODIPINE-VALSARTAN-MEPHA TEVA 5/160 MG 0.5-0-0-0
     Route: 048
  6. VIMOVO [Concomitant]
     Active Substance: ESOMEPRAZOLE MAGNESIUM\NAPROXEN
     Indication: Product used for unknown indication
     Dosage: TIME INTERVAL: AS NECESSARY: 500/20 MG
     Route: 048
     Dates: end: 20240826
  7. SILODOSIN [Concomitant]
     Active Substance: SILODOSIN
     Indication: Prostatomegaly
     Dosage: 8 MG 0-0-1-0, STOPPED DURING THE COURSE
     Route: 048
  8. ZOLPIDEM [Concomitant]
     Active Substance: ZOLPIDEM TARTRATE
     Indication: Product used for unknown indication
     Dosage: 5 MG ONCE DAILY
     Route: 048
     Dates: end: 20240826
  9. CALCIUM\CHOLECALCIFEROL [Concomitant]
     Active Substance: CALCIUM\CHOLECALCIFEROL
     Indication: Product used for unknown indication
     Dosage: 500 MG/ 800 IU 1-0-0-0
     Route: 048
  10. XARELTO [Concomitant]
     Active Substance: RIVAROXABAN
     Indication: Atrial fibrillation
     Dosage: 20 MG 1-0-0-0, STOPPED DURING THE COURSE, INDICATION: TACHYCARDIC ATRIAL FIBRILLATION
     Route: 048
  11. SODIUM CHONDROITIN SULFATE [Concomitant]
     Active Substance: SODIUM CHONDROITIN SULFATE
     Indication: Product used for unknown indication
     Dosage: 800 MG 1X DAILY
     Route: 048
     Dates: end: 20240826

REACTIONS (1)
  - Drug-induced liver injury [Fatal]

NARRATIVE: CASE EVENT DATE: 20240826
